FAERS Safety Report 5926872-7 (Version None)
Quarter: 2008Q4

REPORT INFORMATION
  Report Type: 
  Country: None (occurrence: None)
  Receive Date: 20081017
  Receipt Date: 20081001
  Transmission Date: 20090506
  Serious: Yes (Hospitalization)
  Sender: FDA-Public Use
  Company Number: 2008BI021497

PATIENT
  Age: 39 Year
  Sex: Female
  Weight: 52.1637 kg

DRUGS (12)
  1. TYSABRI [Suspect]
     Indication: MULTIPLE SCLEROSIS
     Dosage: 300 MG; QM; IV
     Route: 042
     Dates: start: 20061127, end: 20080714
  2. EFFEXOR [Concomitant]
  3. GABAPENTIN [Concomitant]
  4. PHENERGAN HCL [Concomitant]
  5. OXYBUTYNIN CHLORIDE [Concomitant]
  6. ER [Concomitant]
  7. BACLOFEN [Concomitant]
  8. LIPITOR [Concomitant]
  9. SEPTRA DS [Concomitant]
  10. MIDRIN [Concomitant]
  11. AVONEX [Concomitant]
  12. VENOGLOBULIN [Concomitant]

REACTIONS (9)
  - BLOOD GLUCOSE INCREASED [None]
  - BLOOD PRESSURE DIASTOLIC DECREASED [None]
  - BLOOD PRESSURE SYSTOLIC INCREASED [None]
  - FALL [None]
  - HAEMATOCRIT DECREASED [None]
  - HAEMOGLOBIN DECREASED [None]
  - RESPIRATORY RATE DECREASED [None]
  - STATUS EPILEPTICUS [None]
  - UNRESPONSIVE TO STIMULI [None]
